FAERS Safety Report 6149888-7 (Version None)
Quarter: 2009Q2

REPORT INFORMATION
  Report Type: 
  Country: None (occurrence: None)
  Receive Date: 20090409
  Receipt Date: 20090403
  Transmission Date: 20091009
  Serious: Yes (Death, Other)
  Sender: FDA-Public Use
  Company Number: US-PURDUE-USA_2009_0037416

PATIENT
  Age: 30 Year
  Sex: Male
  Weight: 91 kg

DRUGS (4)
  1. OXYCODONE HYDROCHLORIDE [Suspect]
     Indication: DRUG USE FOR UNKNOWN INDICATION
     Dosage: UNK MG, UNK
  2. CITALOPRAM HYDROBROMIDE [Suspect]
     Indication: DRUG USE FOR UNKNOWN INDICATION
     Dosage: UNK, UNK
  3. DIPHENHYDRAMINE HCL [Suspect]
     Indication: DRUG USE FOR UNKNOWN INDICATION
     Dosage: UNK, UNK
  4. METHADONE HCL [Suspect]
     Indication: DRUG USE FOR UNKNOWN INDICATION
     Dosage: UNK, UNK

REACTIONS (14)
  - BRAIN OEDEMA [None]
  - COLLAPSE OF LUNG [None]
  - CONTUSION [None]
  - DRUG ABUSE [None]
  - EXCORIATION [None]
  - FALL [None]
  - HAEMOTHORAX [None]
  - HEART INJURY [None]
  - HEPATOSPLENOMEGALY [None]
  - INJURY [None]
  - PERICARDIAL HAEMORRHAGE [None]
  - PULMONARY OEDEMA [None]
  - TOXICOLOGIC TEST ABNORMAL [None]
  - VICTIM OF HOMICIDE [None]
